FAERS Safety Report 5169209-6 (Version None)
Quarter: 2006Q4

REPORT INFORMATION
  Report Type: 
  Country: None (occurrence: None)
  Receive Date: 20061204
  Receipt Date: 20061123
  Transmission Date: 20070319
  Serious: Yes (Other)
  Sender: FDA-Public Use
  Company Number: 2006113221

PATIENT
  Age: 52 Year
  Sex: Female
  Weight: 61.2356 kg

DRUGS (2)
  1. AROMASIN [Suspect]
     Indication: BREAST CANCER
     Dosage: 25 MG (25 MG, 1 IN 1 D), ORAL
     Route: 048
  2. MULTI-VITAMINS [Concomitant]

REACTIONS (10)
  - ABDOMINAL WALL CYST [None]
  - BLOOD OESTROGEN DECREASED [None]
  - BREAST CYST [None]
  - CYST [None]
  - HEPATIC CYST [None]
  - INCORRECT DOSE ADMINISTERED [None]
  - MOOD SWINGS [None]
  - OVARIAN CYST [None]
  - OVARIAN ENLARGEMENT [None]
  - PHARMACEUTICAL PRODUCT COMPLAINT [None]
